FAERS Safety Report 4877440-X (Version None)
Quarter: 2006Q1

REPORT INFORMATION
  Report Type: 
  Country: None (occurrence: None)
  Receive Date: 20060109
  Receipt Date: 20060104
  Transmission Date: 20060701
  Serious: Yes (Death, Other)
  Sender: FDA-Public Use
  Company Number: 200610042GDS

PATIENT
  Sex: Male

DRUGS (1)
  1. ACTIMAX (MOXIFLOXACIN) [Suspect]
     Indication: BACTERIAL INFECTION

REACTIONS (1)
  - CONFUSIONAL STATE [None]
